FAERS Safety Report 8919285 (Version 2)
Quarter: 2012Q4

REPORT INFORMATION
  Report Type: 
  Country: ZA (occurrence: ZA)
  Receive Date: 20121121
  Receipt Date: 20121228
  Transmission Date: 20130627
  Serious: Yes (Other)
  Sender: FDA-Public Use
  Company Number: ZA-ASTRAZENECA-2012SE86510

PATIENT
  Age: 79 Year
  Sex: Female

DRUGS (4)
  1. PULMICORT MDI [Suspect]
     Indication: ASTHMA
     Route: 055
     Dates: start: 20121106
  2. DUOLIN [Concomitant]
     Indication: ASTHMA
     Dosage: nebulisation, as required
     Route: 055
  3. OXYGEN [Concomitant]
  4. SERETIDE [Concomitant]

REACTIONS (3)
  - Wheezing [Unknown]
  - Drug dose omission [Unknown]
  - Device malfunction [None]
